FAERS Safety Report 24390508 (Version 1)
Quarter: 2024Q4

REPORT INFORMATION
  Report Type: Spontaneous
  Country: US (occurrence: US)
  Receive Date: 20241003
  Receipt Date: 20241003
  Transmission Date: 20250114
  Serious: Yes (Other)
  Sender: TEVA
  Company Number: US-TEVA-VS-3248886

PATIENT
  Age: 95 Year
  Sex: Female

DRUGS (2)
  1. PREDNISONE [Suspect]
     Active Substance: PREDNISONE
     Indication: Ocular pemphigoid
     Dosage: HIGH DOSE
     Route: 065
  2. LEFLUNOMIDE [Suspect]
     Active Substance: LEFLUNOMIDE
     Indication: Ocular pemphigoid
     Route: 065

REACTIONS (2)
  - Sebaceous carcinoma [Unknown]
  - Metastatic neoplasm [Unknown]
